FAERS Safety Report 7735063-9 (Version None)
Quarter: 2011Q3

REPORT INFORMATION
  Report Type: 
  Country: None (occurrence: None)
  Receive Date: 20110907
  Receipt Date: 20110826
  Transmission Date: 20111222
  Serious: Yes (Hospitalization, Other)
  Sender: FDA-Public Use
  Company Number: US-BAYER-200911130NA

PATIENT
  Age: 39 Year
  Sex: Female
  Weight: 81.633 kg

DRUGS (3)
  1. GLUCOPHAGE [Concomitant]
     Indication: INSULIN RESISTANCE SYNDROME
     Dosage: 2000 MG (DAILY DOSE), BID, OPHTHALMIC
     Route: 047
     Dates: start: 20050101
  2. SYNTHROID [Concomitant]
     Indication: HYPOTHYROIDISM
     Dosage: 50 ?G (DAILY DOSE), QD, ORAL
     Route: 048
     Dates: start: 20050101
  3. YAZ [Suspect]
     Indication: ORAL CONTRACEPTION
     Dosage: 1 DF (DAILY DOSE), , ORAL
     Route: 048
     Dates: start: 20020101, end: 20081217

REACTIONS (5)
  - PULMONARY EMBOLISM [None]
  - DEEP VEIN THROMBOSIS [None]
  - MENTAL DISORDER [None]
  - DYSPNOEA [None]
  - CHEST PAIN [None]
